FAERS Safety Report 4757973-7 (Version None)
Quarter: 2005Q3

REPORT INFORMATION
  Report Type: 
  Country: None (occurrence: None)
  Receive Date: 20050830
  Receipt Date: 20050823
  Transmission Date: 20060218
  Serious: Yes (Other)
  Sender: FDA-Public Use
  Company Number: CIP05001955

PATIENT
  Sex: Female

DRUGS (1)
  1. ACTONEL [Suspect]
     Indication: OSTEOPOROSIS
     Dosage: ONCE WEEKLY, ORAL
     Route: 048
     Dates: start: 20041101

REACTIONS (20)
  - ADRENAL INSUFFICIENCY [None]
  - AGGRESSION [None]
  - ALOPECIA [None]
  - ASOCIAL BEHAVIOUR [None]
  - ASTHENIA [None]
  - BLOOD PRESSURE INCREASED [None]
  - CHILLS [None]
  - CUSHINGOID [None]
  - DEPRESSION [None]
  - DYSSTASIA [None]
  - FLUID RETENTION [None]
  - GENERAL PHYSICAL HEALTH DETERIORATION [None]
  - IMPAIRED DRIVING ABILITY [None]
  - INFLUENZA LIKE ILLNESS [None]
  - LIPOHYPERTROPHY [None]
  - OCULAR HYPERAEMIA [None]
  - OEDEMA PERIPHERAL [None]
  - POLYMYALGIA RHEUMATICA [None]
  - TEMPERATURE INTOLERANCE [None]
  - WEIGHT INCREASED [None]
